FAERS Safety Report 23947773 (Version 1)
Quarter: 2024Q2

REPORT INFORMATION
  Report Type: Spontaneous
  Country: US (occurrence: US)
  Receive Date: 20240606
  Receipt Date: 20240606
  Transmission Date: 20240716
  Serious: Yes (Hospitalization, Other)
  Sender: FDA-Public Use
  Company Number: US-BRISTOL-MYERS SQUIBB COMPANY-2024-091483

PATIENT
  Age: 79 Year
  Sex: Male
  Weight: 91.17 kg

DRUGS (1)
  1. POMALYST [Suspect]
     Active Substance: POMALIDOMIDE
     Indication: Plasma cell myeloma
     Dosage: DOSE 3MG, DAYS 1 THROUGH 21 AND THEN 7 DAYS OFF
     Route: 048
     Dates: start: 202405

REACTIONS (2)
  - Pneumonia [Unknown]
  - Asthenia [Unknown]
